FAERS Safety Report 4923085-2 (Version None)
Quarter: 2006Q1

REPORT INFORMATION
  Report Type: 
  Country: None (occurrence: None)
  Receive Date: 20060113
  Receipt Date: 20050531
  Transmission Date: 20060701
  Serious: Yes (Other)
  Sender: FDA-Public Use
  Company Number: HQWYE049205AUG04

PATIENT
  Age: 55 Year
  Sex: Female
  Weight: 77.18 kg

DRUGS (6)
  1. PREMPRO [Suspect]
     Indication: HORMONE REPLACEMENT THERAPY
  2. COMBIPATCH [Suspect]
  3. PREMARIN [Suspect]
  4. PROVERA [Suspect]
  5. SYNTHROID [Concomitant]
  6. UNSPECIFIED DIURETIC (UNSPECIFIED DIURETIC) [Concomitant]

REACTIONS (1)
  - BREAST CANCER [None]
